FAERS Safety Report 6790032-0 (Version None)
Quarter: 2010Q2

REPORT INFORMATION
  Report Type: 
  Country: None (occurrence: None)
  Receive Date: 20100624
  Receipt Date: 20100611
  Transmission Date: 20101027
  Serious: Yes (Other)
  Sender: FDA-Public Use
  Company Number: ES-ELI_LILLY_AND_COMPANY-ES201006003477

PATIENT
  Age: 77 Year
  Sex: Female
  Weight: 68 kg

DRUGS (5)
  1. FORTEO [Suspect]
     Indication: OSTEOPOROSIS
     Dosage: 20 UG, DAILY (1/D)
     Route: 058
     Dates: start: 20100521
  2. OSTEOPOR [Concomitant]
     Indication: OSTEOPOROSIS
     Dosage: UNK, 2/D
     Route: 065
  3. NEXIUM-MUPS /01479302/ [Concomitant]
     Indication: HIATUS HERNIA
     Dosage: UNK, DAILY (1/D)
     Route: 048
  4. CARDIL                             /00489702/ [Concomitant]
     Indication: HYPERCHOLESTEROLAEMIA
     Dosage: 40 MG, DAILY (1/D)
     Route: 048
  5. DIOVAN HCT [Concomitant]
     Dosage: 80 MG, DAILY (1/D)
     Route: 048

REACTIONS (6)
  - AMNESIA [None]
  - BONE PAIN [None]
  - DIZZINESS [None]
  - MUSCLE SPASMS [None]
  - MUSCULAR WEAKNESS [None]
  - PAIN IN EXTREMITY [None]
